FAERS Safety Report 6375491-X (Version None)
Quarter: 2009Q3

REPORT INFORMATION
  Report Type: 
  Country: None (occurrence: None)
  Receive Date: 20090924
  Receipt Date: 20090622
  Transmission Date: 20100115
  Serious: No
  Sender: FDA-Public Use
  Company Number: US-BAYER-200914017BCC

PATIENT
  Age: 30 Year
  Sex: Female

DRUGS (2)
  1. ALEVE [Suspect]
     Indication: DRUG USE FOR UNKNOWN INDICATION
     Dosage: UNIT DOSE: 220 MG
     Route: 048
  2. VICODIN [Concomitant]
     Indication: DYSMENORRHOEA
     Route: 065

REACTIONS (1)
  - NO ADVERSE EVENT [None]
